FAERS Safety Report 24679661 (Version 1)
Quarter: 2024Q4

REPORT INFORMATION
  Report Type: Report from Study
  Country: US (occurrence: US)
  Receive Date: 20241129
  Receipt Date: 20241129
  Transmission Date: 20250115
  Serious: Yes (Hospitalization)
  Sender: RECORDATI
  Company Number: US-RECORDATI RARE DISEASES-2024009282

PATIENT

DRUGS (7)
  1. CYSTADANE [Suspect]
     Active Substance: BETAINE
     Indication: Homocystinuria
     Dosage: 4 GRAM, BID (ORAL POWDER)
     Route: 048
     Dates: start: 202408
  2. CYSTADANE [Suspect]
     Active Substance: BETAINE
     Dosage: 3 GRAM (SCOOPS), BID
     Route: 048
     Dates: start: 20240312, end: 202408
  3. ELIQUIS [Concomitant]
     Active Substance: APIXABAN
     Indication: Product used for unknown indication
     Dosage: 5 MG, BID (ORAL TABLET 5 MG)
     Route: 048
     Dates: start: 20240301
  4. FAMOTIDINE [Concomitant]
     Active Substance: FAMOTIDINE
     Indication: Product used for unknown indication
     Dosage: 20 MG, BID (ORAL TABLET 20 MG)
     Route: 048
     Dates: start: 20240301
  5. KEPPRA [Concomitant]
     Active Substance: LEVETIRACETAM
     Indication: Product used for unknown indication
     Dosage: 250 MG, BID (ORAL TABLET 250 MG)
     Route: 048
     Dates: start: 20240506
  6. LACOSAMIDE [Concomitant]
     Active Substance: LACOSAMIDE
     Indication: Product used for unknown indication
     Dosage: 150 MG, BID (ORAL TABLET 150 MG)
     Route: 048
     Dates: start: 20240506
  7. LAMOTRIGINE [Concomitant]
     Active Substance: LAMOTRIGINE
     Indication: Product used for unknown indication
     Dosage: 25 MG, BID (ORAL TABLET 25 MG)
     Route: 048
     Dates: start: 20240301

REACTIONS (1)
  - Ill-defined disorder [Recovering/Resolving]

NARRATIVE: CASE EVENT DATE: 20241112
